FAERS Safety Report 10963226 (Version 2)
Quarter: 2015Q3

REPORT INFORMATION
  Report Type: Spontaneous
  Country: US (occurrence: US)
  Receive Date: 20150205
  Receipt Date: 20150923
  Transmission Date: 20151125
  Serious: Yes (Death)
  Sender: FDA-Public Use
  Company Number: US-APOTEX-2015AP006186

PATIENT
  Age: 63 Year
  Sex: Female

DRUGS (1)
  1. VALPROIC ACID [D] [Suspect]
     Active Substance: VALPROIC ACID
     Route: 048

REACTIONS (1)
  - Completed suicide [Fatal]
